FAERS Safety Report 9703274 (Version 1)
Quarter: 2013Q4

REPORT INFORMATION
  Report Type: Spontaneous
  Country: FR (occurrence: FR)
  Receive Date: 20131122
  Receipt Date: 20131122
  Transmission Date: 20140711
  Serious: Yes (Hospitalization)
  Sender: FDA-Public Use
  Company Number: FR-AMGEN-FRASP2013081572

PATIENT
  Age: 75 Year
  Sex: Male

DRUGS (2)
  1. VECTIBIX [Suspect]
     Indication: PRODUCT USED FOR UNKNOWN INDICATION
     Dosage: 1 DF, Q2WK (1 INJECTION EVERY 15 DAYS)
     Route: 042
     Dates: start: 20121122
  2. SEPTIVON                           /00133001/ [Concomitant]
     Dosage: UNK

REACTIONS (1)
  - Scrotal erythema [Recovered/Resolved]
